FAERS Safety Report 8229713-0 (Version None)
Quarter: 2012Q1

REPORT INFORMATION
  Report Type: 
  Country: None (occurrence: None)
  Receive Date: 20120322
  Receipt Date: 20120313
  Transmission Date: 20120608
  Serious: Yes (Hospitalization)
  Sender: FDA-Public Use
  Company Number: US-ASTRAZENECA-2011SE76602

PATIENT
  Age: 50 Year
  Sex: Male

DRUGS (1)
  1. NEXIUM [Suspect]
     Route: 048

REACTIONS (10)
  - ULCER [None]
  - VOMITING [None]
  - MALNUTRITION [None]
  - HYPOPHAGIA [None]
  - INTESTINAL OBSTRUCTION [None]
  - GASTRIC DISORDER [None]
  - INCORRECT DOSE ADMINISTERED [None]
  - PYLORIC STENOSIS [None]
  - GASTROINTESTINAL DISORDER [None]
  - HYPOKALAEMIA [None]
